FAERS Safety Report 9776925 (Version 4)
Quarter: 2016Q1

REPORT INFORMATION
  Report Type: Report from Study
  Country: GB (occurrence: GB)
  Receive Date: 20131221
  Receipt Date: 20160318
  Transmission Date: 20160526
  Serious: Yes (Other)
  Sender: FDA-Public Use
  Company Number: GB-ASTRAZENECA-2013SE91127

PATIENT
  Age: 24666 Day
  Sex: Male
  Weight: 68.8 kg

DRUGS (2)
  1. AZD6244 [Suspect]
     Active Substance: SELUMETINIB
     Indication: NON-SMALL CELL LUNG CANCER
     Route: 048
     Dates: start: 20131119, end: 20131202
  2. VANDETANIB. [Suspect]
     Active Substance: VANDETANIB
     Indication: NON-SMALL CELL LUNG CANCER
     Route: 048
     Dates: start: 20131104, end: 20131202

REACTIONS (1)
  - Detachment of retinal pigment epithelium [Recovered/Resolved]

NARRATIVE: CASE EVENT DATE: 20131125
